FAERS Safety Report 19511297 (Version 3)
Quarter: 2021Q3

REPORT INFORMATION
  Report Type: Spontaneous
  Country: FR (occurrence: FR)
  Receive Date: 20210709
  Receipt Date: 20210909
  Transmission Date: 20211014
  Serious: Yes (Hospitalization, Other)
  Sender: FDA-Public Use
  Company Number: FR-AUROBINDO-AUR-APL-2021-029081

PATIENT
  Age: 73 Year
  Sex: Male
  Weight: 106 kg

DRUGS (15)
  1. VALACYCLOVIR [Suspect]
     Active Substance: VALACYCLOVIR HYDROCHLORIDE
     Indication: INFECTION
     Dosage: 3300 MILLIGRAM, ONCE A DAY (3300 MG, QD)
     Route: 042
     Dates: start: 20210521, end: 20210523
  2. PANTOPRAZOLE [Concomitant]
     Active Substance: PANTOPRAZOLE
     Indication: PRODUCT USED FOR UNKNOWN INDICATION
     Dosage: UNK
     Route: 065
  3. PARACETAMOL [Concomitant]
     Active Substance: ACETAMINOPHEN
     Indication: PRODUCT USED FOR UNKNOWN INDICATION
     Dosage: UNK
     Route: 065
  4. FOSFOMYCIN [Suspect]
     Active Substance: FOSFOMYCIN
     Indication: INFECTION
     Dosage: 12 GRAM, ONCE A DAY (12 G, QD (4G 3/J))
     Route: 042
     Dates: start: 20210521, end: 20210523
  5. METRONIDAZOLE. [Suspect]
     Active Substance: METRONIDAZOLE
     Indication: INFECTION
     Dosage: 1500 MILLIGRAM, ONCE A DAY (1500 MG, QD)
     Route: 042
     Dates: start: 20210521, end: 20210523
  6. INSULIN [Concomitant]
     Active Substance: INSULIN NOS
     Indication: PRODUCT USED FOR UNKNOWN INDICATION
     Dosage: UNK
     Route: 065
  7. ACICLOVIR MYLAN [Suspect]
     Active Substance: ACYCLOVIR
     Indication: INFECTION
     Dosage: 3300 MILLIGRAM, 3 TIMES A DAY (3300 MG, TID)
     Route: 042
     Dates: start: 20210521, end: 20210523
  8. HYDROCORTISONE UPJOHN [Suspect]
     Active Substance: HYDROCORTISONE
     Indication: INFECTION
     Dosage: 200 MILLIGRAM, ONCE A DAY(200 MG, QD)
     Route: 042
     Dates: start: 20210521, end: 20210521
  9. NORADRENALINE MYLAN [Suspect]
     Active Substance: NOREPINEPHRINE\NOREPINEPHRINE BITARTRATE
     Indication: HYPOTENSION
     Dosage: 20 MILLIGRAM, ONCE A DAY (20 MG, QD)
     Route: 042
     Dates: start: 20210521, end: 20210521
  10. ROVAMYCIN [Suspect]
     Active Substance: SPIRAMYCIN
     Indication: INFECTION
     Dosage: 1.5 MILLION INTERNATIONAL UNIT, 3 TIMES A DAY (1.5 MIU, Q8H)
     Route: 042
     Dates: start: 20210521, end: 20210523
  11. FUMAFER [Concomitant]
     Active Substance: FERROUS FUMARATE
     Indication: PRODUCT USED FOR UNKNOWN INDICATION
     Dosage: UNK
     Route: 065
  12. LEVOTHYROX [Concomitant]
     Active Substance: LEVOTHYROXINE
     Indication: PRODUCT USED FOR UNKNOWN INDICATION
     Dosage: UNK
     Route: 065
  13. MEROPENEM ARROW 1000 MG POWDER FOR SOLUTION FOR INJECION OR INFUSION [Suspect]
     Active Substance: MEROPENEM
     Indication: INFECTION
     Dosage: 6 GRAM, ONCE A DAY (6 G, QD)
     Route: 042
     Dates: start: 20210521, end: 20210525
  14. FLUCORTAC [Suspect]
     Active Substance: FLUDROCORTISONE ACETATE
     Indication: INFECTION
     Dosage: 50 MICROGRAM, ONCE A DAY
     Route: 048
     Dates: start: 20210521, end: 20210521
  15. VITAMINE K1 CHEPLAPHARM [Suspect]
     Active Substance: PHYTONADIONE
     Indication: PRODUCT USED FOR UNKNOWN INDICATION
     Dosage: 10 MILLIGRAM, ONCE A DAY (10 MG, QD)
     Route: 042
     Dates: start: 20210521, end: 20210521

REACTIONS (1)
  - Epileptic encephalopathy [Recovered/Resolved]

NARRATIVE: CASE EVENT DATE: 20210522
